FAERS Safety Report 14377979 (Version 4)
Quarter: 2018Q4

REPORT INFORMATION
  Report Type: Spontaneous
  Country: US (occurrence: US)
  Receive Date: 20180111
  Receipt Date: 20181120
  Transmission Date: 20190204
  Serious: Yes (Hospitalization, Other)
  Sender: FDA-Public Use
  Company Number: US-DSJP-DSU-2017-137180

PATIENT

DRUGS (3)
  1. BENICAR [Suspect]
     Active Substance: OLMESARTAN MEDOXOMIL
     Indication: HYPERTENSION
     Dosage: 40 MG, QD
     Route: 048
     Dates: start: 20080729
  2. BENICAR [Suspect]
     Active Substance: OLMESARTAN MEDOXOMIL
     Dosage: 20 MG(1/2 OF 40) MG , QD
     Route: 048
  3. BENICAR [Suspect]
     Active Substance: OLMESARTAN MEDOXOMIL
     Dosage: 20 MG, QD
     Route: 048
     Dates: start: 2009, end: 2015

REACTIONS (8)
  - Polyp [Not Recovered/Not Resolved]
  - Sprue-like enteropathy [Recovering/Resolving]
  - Peptic ulcer [Unknown]
  - Diverticulum intestinal [Not Recovered/Not Resolved]
  - Infectious colitis [Recovering/Resolving]
  - Diverticulitis [Not Recovered/Not Resolved]
  - Gastric ulcer [Recovered/Resolved]
  - Product administration error [Unknown]

NARRATIVE: CASE EVENT DATE: 2010
